FAERS Safety Report 11962438 (Version 3)
Quarter: 2016Q1

REPORT INFORMATION
  Report Type: Spontaneous
  Country: PT (occurrence: PT)
  Receive Date: 20160126
  Receipt Date: 20160302
  Transmission Date: 20160526
  Serious: Yes (Other)
  Sender: FDA-Public Use
  Company Number: PT-ACTAVIS-2016-01131

PATIENT
  Age: 67 Year
  Sex: Male
  Weight: 80 kg

DRUGS (4)
  1. DOCETAXEL ACTAVIS [Suspect]
     Active Substance: DOCETAXEL
     Indication: PROSTATE CANCER
     Route: 042
     Dates: start: 20151204, end: 20151204
  2. DEXAMETASONA                       /00016001/ [Concomitant]
     Indication: ALLERGY PROPHYLAXIS
     Dosage: 20 MG, DAILY, PRE-MEDICATION
     Route: 042
     Dates: start: 20151204, end: 20151204
  3. SODIUM CHLORIDE. [Concomitant]
     Active Substance: SODIUM CHLORIDE
     Indication: VEHICLE SOLUTION USE
     Dosage: UNK
     Route: 042
     Dates: start: 20151204, end: 20151204
  4. ONDANSETROM                        /00955301/ [Concomitant]
     Indication: ALLERGY PROPHYLAXIS
     Dosage: 8 MG, DAILY, PRE-MEDICATION
     Route: 042
     Dates: start: 20151204, end: 20151204

REACTIONS (2)
  - Chemical burn of skin [Recovered/Resolved]
  - Injection site exfoliation [Recovered/Resolved]

NARRATIVE: CASE EVENT DATE: 20151209
